FAERS Safety Report 5066309-6 (Version None)
Quarter: 2006Q3

REPORT INFORMATION
  Report Type: 
  Country: None (occurrence: None)
  Receive Date: 20060801
  Receipt Date: 20060719
  Transmission Date: 20061208
  Serious: Yes (Hospitalization)
  Sender: FDA-Public Use
  Company Number: US-AMGEN-STX187036

PATIENT
  Sex: Female

DRUGS (3)
  1. ENBREL [Suspect]
     Indication: JUVENILE ARTHRITIS
     Route: 058
     Dates: start: 20041002, end: 20050101
  2. PLAQUENIL [Concomitant]
     Route: 065
     Dates: start: 20041005
  3. METHOTREXATE [Concomitant]
     Route: 065

REACTIONS (5)
  - ALOPECIA [None]
  - ASTHMA [None]
  - CONDITION AGGRAVATED [None]
  - JUVENILE ARTHRITIS [None]
  - SKIN EXFOLIATION [None]
